FAERS Safety Report 5674346-3 (Version None)
Quarter: 2008Q2

REPORT INFORMATION
  Report Type: 
  Country: None (occurrence: None)
  Receive Date: 20080229
  Receipt Date: 20071003
  Transmission Date: 20081010
  Serious: Yes (Other)
  Sender: FDA-Public Use
  Company Number: 246347

PATIENT
  Age: 12 Year
  Sex: Male
  Weight: 82.5 kg

DRUGS (5)
  1. NUTROPIN [Suspect]
     Indication: HYPOPITUITARISM
     Dosage: 3 MG, QD, SUBCUTANEOUS
     Route: 058
     Dates: start: 20061116
  2. NOVOLOG (INSULIN HUMAN) [Concomitant]
  3. NOVOLIN H (NPH HUMAN INSULIN ISOPHANE SUSPENSION) [Concomitant]
  4. METFORMIN HCL [Concomitant]
  5. DESMOPRESSIN (DESMOPRESSIN ACETATE) [Concomitant]

REACTIONS (1)
  - TYPE 2 DIABETES MELLITUS [None]
